FAERS Safety Report 5500975-3 (Version None)
Quarter: 2007Q4

REPORT INFORMATION
  Report Type: 
  Country: None (occurrence: None)
  Receive Date: 20071029
  Receipt Date: 20071019
  Transmission Date: 20080405
  Serious: Yes (Other)
  Sender: FDA-Public Use
  Company Number: PHBS2007FI17472

PATIENT
  Age: 59 Year
  Sex: Female

DRUGS (2)
  1. EXJADE [Suspect]
     Indication: MYELODYSPLASTIC SYNDROME
     Dosage: 1000 MG/D
     Route: 065
     Dates: start: 20061101
  2. EXJADE [Suspect]
     Dates: start: 20070201

REACTIONS (12)
  - ABDOMINAL PAIN UPPER [None]
  - DYSPEPSIA [None]
  - ENDOSCOPY GASTROINTESTINAL ABNORMAL [None]
  - GASTROINTESTINAL CANDIDIASIS [None]
  - HERPES SIMPLEX [None]
  - MALAISE [None]
  - NAUSEA [None]
  - NEUTROPENIA [None]
  - NEUTROPHIL COUNT DECREASED [None]
  - OESOPHAGITIS [None]
  - VENIPUNCTURE [None]
  - WEIGHT DECREASED [None]
